FAERS Safety Report 19489913 (Version 4)
Quarter: 2021Q4

REPORT INFORMATION
  Report Type: Spontaneous
  Country: PR (occurrence: US)
  Receive Date: 20210704
  Receipt Date: 20211214
  Transmission Date: 20220303
  Serious: Yes (Other)
  Sender: FDA-Public Use
  Company Number: PR-JNJFOC-20210658058

PATIENT
  Age: 49 Year
  Sex: Female

DRUGS (4)
  1. ELMIRON [Suspect]
     Active Substance: PENTOSAN POLYSULFATE SODIUM
     Indication: Cystitis interstitial
     Route: 048
     Dates: start: 1999
  2. ELMIRON [Suspect]
     Active Substance: PENTOSAN POLYSULFATE SODIUM
     Route: 048
     Dates: start: 200201, end: 201012
  3. LEVOTHYROXINE [Concomitant]
     Active Substance: LEVOTHYROXINE
     Indication: Thyroid disorder
     Dates: start: 202009
  4. MYRBETRIQ [Concomitant]
     Active Substance: MIRABEGRON
     Indication: Bladder disorder
     Dates: start: 2020

REACTIONS (7)
  - Chorioretinal atrophy [Not Recovered/Not Resolved]
  - Retinal degeneration [Not Recovered/Not Resolved]
  - Retinal vascular disorder [Not Recovered/Not Resolved]
  - Retinal pigmentation [Not Recovered/Not Resolved]
  - Retinal haemorrhage [Not Recovered/Not Resolved]
  - Anxiety [Not Recovered/Not Resolved]
  - Depression [Not Recovered/Not Resolved]

NARRATIVE: CASE EVENT DATE: 20200901
